FAERS Safety Report 9186665 (Version 1)
Quarter: 2013Q1

REPORT INFORMATION
  Report Type: Spontaneous
  Country: US (occurrence: US)
  Receive Date: 20130325
  Receipt Date: 20130325
  Transmission Date: 20140127
  Serious: No
  Sender: FDA-Public Use
  Company Number: US-GLAXOSMITHKLINE-A0960219A

PATIENT
  Age: 75 Year
  Sex: Female

DRUGS (2)
  1. RYTHMOL SR [Suspect]
     Indication: ARRHYTHMIA
     Dosage: 1CAP TWICE PER DAY
     Route: 048
     Dates: start: 2002
  2. PRADAXA [Concomitant]

REACTIONS (1)
  - Head titubation [Not Recovered/Not Resolved]
